FAERS Safety Report 24787181 (Version 1)
Quarter: 2024Q4

REPORT INFORMATION
  Report Type: Spontaneous
  Country: GB (occurrence: GB)
  Receive Date: 20241230
  Receipt Date: 20241230
  Transmission Date: 20250115
  Serious: Yes (Hospitalization, Other)
  Sender: CELLTRION
  Company Number: GB-BAXTER-2024BAX029563

PATIENT

DRUGS (1)
  1. INFLIXIMAB [Suspect]
     Active Substance: INFLIXIMAB
     Indication: Colitis
     Dosage: (REMSIMA 1 MG BAXTER) UNSPECIFIED DOSE, 6 WEEKLY
     Route: 042

REACTIONS (1)
  - Colitis [Unknown]
